FAERS Safety Report 6813360-9 (Version None)
Quarter: 2010Q3

REPORT INFORMATION
  Report Type: 
  Country: None (occurrence: None)
  Receive Date: 20100701
  Receipt Date: 20100629
  Transmission Date: 20110219
  Serious: Yes (Life-Threatening)
  Sender: FDA-Public Use
  Company Number: AT-JNJFOC-20100602706

PATIENT
  Age: 80 Year

DRUGS (3)
  1. SPORANOX [Suspect]
     Indication: FUNGAL INFECTION
     Route: 065
  2. BLOPRESS [Suspect]
     Indication: PRODUCT USED FOR UNKNOWN INDICATION
     Route: 065
  3. SPIRONO [Concomitant]
     Route: 065

REACTIONS (3)
  - CONFUSIONAL STATE [None]
  - DISORIENTATION [None]
  - HYPERTENSIVE CRISIS [None]
